FAERS Safety Report 24319208 (Version 2)
Quarter: 2024Q3

REPORT INFORMATION
  Report Type: Report from Study
  Country: US (occurrence: US)
  Receive Date: 20240913
  Receipt Date: 20240916
  Transmission Date: 20241016
  Serious: Yes (Death)
  Sender: ABBVIE
  Company Number: US-ABBVIE-5922161

PATIENT
  Age: 82 Year
  Sex: Male

DRUGS (28)
  1. VENCLEXTA [Suspect]
     Active Substance: VENETOCLAX
     Indication: Chronic lymphocytic leukaemia
     Dosage: 4 TABLET(S) BY MOUTH DAILY
     Route: 048
  2. ACTIVASE [Concomitant]
     Active Substance: ALTEPLASE
     Indication: Product used for unknown indication
  3. CATHFLO ACTIVASE [Concomitant]
     Active Substance: ALTEPLASE
     Indication: Product used for unknown indication
  4. TNKASE [Concomitant]
     Active Substance: TENECTEPLASE
     Indication: Product used for unknown indication
  5. XOLAIR [Concomitant]
     Active Substance: OMALIZUMAB
     Indication: Product used for unknown indication
  6. MABTHERA [Concomitant]
     Active Substance: RITUXIMAB
     Indication: Product used for unknown indication
  7. RITUXAN [Concomitant]
     Active Substance: RITUXIMAB
     Indication: Product used for unknown indication
  8. ACTEMRA [Concomitant]
     Active Substance: TOCILIZUMAB
     Indication: Product used for unknown indication
  9. TOCILIZUMAB [Concomitant]
     Active Substance: TOCILIZUMAB
     Indication: Product used for unknown indication
  10. IBANDRONATE SODIUM [Concomitant]
     Active Substance: IBANDRONATE SODIUM
     Indication: Product used for unknown indication
  11. BONIVA [Concomitant]
     Active Substance: IBANDRONATE SODIUM
     Indication: Product used for unknown indication
  12. AVASTIN [Concomitant]
     Active Substance: BEVACIZUMAB
     Indication: Product used for unknown indication
  13. XELODA [Concomitant]
     Active Substance: CAPECITABINE
     Indication: Product used for unknown indication
  14. TARCEVA [Concomitant]
     Active Substance: ERLOTINIB HYDROCHLORIDE
     Indication: Product used for unknown indication
  15. PERJETA [Concomitant]
     Active Substance: PERTUZUMAB
     Indication: Product used for unknown indication
  16. FORTOVASE [Concomitant]
     Active Substance: SAQUINAVIR
     Indication: Product used for unknown indication
  17. HERCEPTIN [Concomitant]
     Active Substance: TRASTUZUMAB
     Indication: Product used for unknown indication
  18. ZELBORAF [Concomitant]
     Active Substance: VEMURAFENIB
     Indication: Product used for unknown indication
  19. ERIVEDGE [Concomitant]
     Active Substance: VISMODEGIB
     Indication: Product used for unknown indication
  20. LUCENTIS [Concomitant]
     Active Substance: RANIBIZUMAB
     Indication: Product used for unknown indication
  21. PULMOZYME [Concomitant]
     Active Substance: DORNASE ALFA
     Indication: Product used for unknown indication
  22. CELLCEPT [Concomitant]
     Active Substance: MYCOPHENOLATE MOFETIL
     Indication: Product used for unknown indication
  23. VALCYTE [Concomitant]
     Active Substance: VALGANCICLOVIR HYDROCHLORIDE
     Indication: Product used for unknown indication
  24. FUZEON [Concomitant]
     Active Substance: ENFUVIRTIDE
     Indication: Product used for unknown indication
  25. PEGASYS [Concomitant]
     Active Substance: PEGINTERFERON ALFA-2A
     Indication: Product used for unknown indication
  26. COPEGUS [Concomitant]
     Active Substance: RIBAVIRIN
     Indication: Product used for unknown indication
  27. RIBAVIRIN [Concomitant]
     Active Substance: RIBAVIRIN
     Indication: Product used for unknown indication
  28. INVIRASE [Concomitant]
     Active Substance: SAQUINAVIR MESYLATE
     Indication: Product used for unknown indication

REACTIONS (1)
  - Death [Fatal]

NARRATIVE: CASE EVENT DATE: 20240907
